FAERS Safety Report 21177729 (Version 1)
Quarter: 2022Q3

REPORT INFORMATION
  Report Type: Other
  Country: None (occurrence: JP)
  Receive Date: 20220805
  Receipt Date: 20220805
  Transmission Date: 20221027
  Serious: Yes (Hospitalization)
  Sender: FDA-Public Use
  Company Number: JP-B.Braun Medical Inc.-2131545

PATIENT
  Age: 79 Year
  Sex: Female

DRUGS (2)
  1. BUPIVACAINE HYDROCHLORIDE WITH DEXTROSE [Suspect]
     Active Substance: BUPIVACAINE HYDROCHLORIDE
  2. LIDOCAINE HCI AND EPINEPHRINE [Suspect]
     Active Substance: EPINEPHRINE\LIDOCAINE HYDROCHLORIDE

REACTIONS (7)
  - Off label use [Recovered/Resolved]
  - Anaesthetic complication [Recovered/Resolved]
  - Loss of consciousness [Recovered/Resolved]
  - Cranial nerve disorder [Recovered/Resolved]
  - Mydriasis [Recovered/Resolved]
  - Pupillary light reflex tests abnormal [Recovered/Resolved]
  - Areflexia [Recovered/Resolved]
